FAERS Safety Report 8309114-7 (Version None)
Quarter: 2012Q2

REPORT INFORMATION
  Report Type: 
  Country: None (occurrence: None)
  Receive Date: 20120424
  Receipt Date: 20120327
  Transmission Date: 20120825
  Serious: Yes (Other)
  Sender: FDA-Public Use
  Company Number: IE-ELI_LILLY_AND_COMPANY-IE201203008848

PATIENT
  Age: 12 Year
  Sex: Male

DRUGS (3)
  1. PROZAC [Suspect]
     Indication: OBSESSIVE-COMPULSIVE DISORDER
     Dosage: 5 MG, UNK
     Route: 065
  2. PROZAC [Suspect]
     Dosage: 20 MG, UNK
     Route: 065
  3. PROZAC [Suspect]
     Dosage: 15 MG, UNK
     Route: 065

REACTIONS (2)
  - SYNCOPE [None]
  - DROP ATTACKS [None]
